FAERS Safety Report 4408201-3 (Version None)
Quarter: 2004Q3

REPORT INFORMATION
  Report Type: 
  Country: None (occurrence: None)
  Receive Date: 20040722
  Receipt Date: 20040720
  Transmission Date: 20050211
  Serious: Yes (Hospitalization)
  Sender: FDA-Public Use
  Company Number: 2004CG01395

PATIENT
  Sex: Male

DRUGS (2)
  1. XYLOCAINE [Suspect]
     Indication: LOCAL ANAESTHESIA
     Dates: start: 20040101, end: 20040101
  2. DUOVISC [Suspect]
     Dates: start: 20040101, end: 20040101

REACTIONS (2)
  - ENDOPHTHALMITIS [None]
  - POST PROCEDURAL COMPLICATION [None]
